FAERS Safety Report 6994756-1 (Version None)
Quarter: 2010Q3

REPORT INFORMATION
  Report Type: 
  Country: None (occurrence: None)
  Receive Date: 20100917
  Receipt Date: 20090807
  Transmission Date: 20110219
  Serious: Yes (Other)
  Sender: FDA-Public Use
  Company Number: HQWYE026114APR05

PATIENT
  Sex: Female

DRUGS (7)
  1. PREMPRO [Suspect]
     Indication: HORMONE REPLACEMENT THERAPY
     Dosage: UNKNOWN
     Route: 048
     Dates: start: 19930101, end: 20040101
  2. PREMPRO [Suspect]
     Indication: MENOPAUSAL SYMPTOMS
  3. NORETHINDRONE ACETATE [Suspect]
  4. PROVERA [Suspect]
  5. PREMARIN [Suspect]
  6. FEMHRT [Suspect]
  7. PREFEST [Suspect]

REACTIONS (1)
  - BREAST CANCER [None]
